FAERS Safety Report 8807737 (Version 1)
Quarter: 2012Q4

REPORT INFORMATION
  Report Type: 
  Country: US (occurrence: US)
  Receive Date: 20120925
  Receipt Date: 20120925
  Transmission Date: 20130627
  Serious: No
  Sender: FDA-Public Use
  Company Number: US-BIOGENIDEC-2012BI038198

PATIENT
  Sex: Female

DRUGS (2)
  1. AVONEX [Suspect]
     Indication: MULTIPLE SCLEROSIS
     Route: 030
     Dates: start: 20021119
  2. AVONEX [Suspect]
     Indication: MULTIPLE SCLEROSIS
     Route: 030

REACTIONS (6)
  - General physical health deterioration [Not Recovered/Not Resolved]
  - Hearing impaired [Not Recovered/Not Resolved]
  - Nervousness [Not Recovered/Not Resolved]
  - Fear [Not Recovered/Not Resolved]
  - Malaise [Unknown]
  - Influenza like illness [Recovered/Resolved]
